FAERS Safety Report 14988607 (Version 2)
Quarter: 2018Q2

REPORT INFORMATION
  Report Type: Spontaneous
  Country: US (occurrence: US)
  Receive Date: 20180608
  Receipt Date: 20180612
  Transmission Date: 20180711
  Serious: No
  Sender: FDA-Public Use
  Company Number: US-PFIZER INC-2017212802

PATIENT
  Age: 20 Year
  Sex: Male

DRUGS (2)
  1. BENEFIX [Suspect]
     Active Substance: COAGULATION FACTOR IX RECOMBINANT HUMAN\ISOPROPYL ALCOHOL
     Indication: HAEMOPHILIA
  2. BENEFIX [Suspect]
     Active Substance: COAGULATION FACTOR IX RECOMBINANT HUMAN\ISOPROPYL ALCOHOL
     Indication: COAGULATION FACTOR IX LEVEL ABNORMAL
     Dosage: 4000 IU (^PLUS OR MINUS 10% INTO VAIN FOR, BLEEDING DAILY FOR UP TO 7 DAYS^)
     Dates: start: 20170511

REACTIONS (1)
  - Ligament sprain [Recovering/Resolving]
